FAERS Safety Report 10585307 (Version 2)
Quarter: 2015Q2

REPORT INFORMATION
  Report Type: Spontaneous
  Country: JP (occurrence: None)
  Receive Date: 20141113
  Receipt Date: 20150409
  Transmission Date: 20150821
  Serious: Yes (Hospitalization)
  Sender: FDA-Public Use
  Company Number: 2014-003296

PATIENT
  Age: 79 Year
  Sex: Male

DRUGS (14)
  1. ENALAPRIL [Concomitant]
     Active Substance: ENALAPRIL
  2. FUROSEMIDE. [Concomitant]
     Active Substance: FUROSEMIDE
  3. DORNER (BERAPROST SODIUM) [Concomitant]
  4. METHYLCOBAL (MECOBALAMIN) [Concomitant]
  5. PREDONINE /0016201/ (PREDNISOLONE) [Concomitant]
  6. MOHRUS (KETOPROFEN) [Concomitant]
  7. NEOSTELINGREEN (BENZETHONIUM CHLORIDE) [Concomitant]
  8. ACTONEL [Suspect]
     Active Substance: RISEDRONATE SODIUM
     Indication: OSTEOPOROSIS PROPHYLAXIS
     Route: 048
     Dates: start: 20120928, end: 20141002
  9. VITAMIN D AND ANALOGUES [Concomitant]
  10. JUVELA N (TOCOPHERYL NICOTINATE) [Concomitant]
  11. SPIRONOLACTONE. [Concomitant]
     Active Substance: SPIRONOLACTONE
  12. ARTIST (CARVEDILOL) [Concomitant]
  13. CALONAL (PARACETAMOL) [Concomitant]
  14. ANPLAG (SARPOGRELATE HYDROCHLORIDE) [Concomitant]

REACTIONS (3)
  - Pain in jaw [None]
  - Atrioventricular block complete [None]
  - Osteonecrosis of jaw [None]

NARRATIVE: CASE EVENT DATE: 201409
